FAERS Safety Report 10686195 (Version 4)
Quarter: 2015Q2

REPORT INFORMATION
  Report Type: Spontaneous
  Country: US (occurrence: US)
  Receive Date: 20141231
  Receipt Date: 20150420
  Transmission Date: 20150821
  Serious: Yes (Hospitalization)
  Sender: FDA-Public Use
  Company Number: US-PFIZER INC-2014358906

PATIENT
  Age: 59 Year
  Sex: Female
  Weight: 64 kg

DRUGS (3)
  1. PREMARIN [Suspect]
     Active Substance: ESTROGENS, CONJUGATED
     Indication: BLOOD OESTROGEN DECREASED
     Dosage: 1.25 MG, 1X/DAY
  2. SYNTHROID [Suspect]
     Active Substance: LEVOTHYROXINE SODIUM
     Indication: THYROID DISORDER
     Dosage: 75 ?G, 1X/DAY
  3. PREMARIN [Suspect]
     Active Substance: ESTROGENS, CONJUGATED
     Indication: HORMONE REPLACEMENT THERAPY

REACTIONS (5)
  - Drug ineffective [Recovered/Resolved]
  - Weight increased [Recovered/Resolved]
  - Counterfeit drug administered [Unknown]
  - Endometrial disorder [Unknown]
  - Suspected counterfeit product [Unknown]
